FAERS Safety Report 25666104 (Version 1)
Quarter: 2025Q3

REPORT INFORMATION
  Report Type: Report from Study
  Country: CA (occurrence: CA)
  Receive Date: 20250811
  Receipt Date: 20250811
  Transmission Date: 20251021
  Serious: Yes (Hospitalization, Other)
  Sender: PFIZER
  Company Number: CA-PFIZER INC-202500158555

PATIENT
  Age: 65 Year
  Sex: Female

DRUGS (8)
  1. FRAGMIN [Suspect]
     Active Substance: DALTEPARIN SODIUM
     Dosage: 15000 IU, DAILY (1 EVERY 1 DAYS)
     Route: 058
  2. LANREOTIDE ACETATE [Suspect]
     Active Substance: LANREOTIDE ACETATE
     Indication: Gastroenteropancreatic neuroendocrine tumour disease
     Dosage: 120 MG, MONTHLY (1 EVERY 4 WEEKS)
     Route: 058
  3. AMLODIPINE [Concomitant]
     Active Substance: AMLODIPINE BESYLATE
     Dosage: 10 MG, DAILY (1 EVERY 1 DAYS)
  4. BASAGLAR [Concomitant]
     Active Substance: INSULIN GLARGINE
     Route: 058
  5. GLICLAZIDE [Concomitant]
     Active Substance: GLICLAZIDE
     Dosage: 60 MG, DAILY (1 EVERY 1 DAYS)
  6. INSULIN LISPRO [Concomitant]
     Active Substance: INSULIN LISPRO
  7. JARDIANCE [Concomitant]
     Active Substance: EMPAGLIFLOZIN
     Dosage: 10 G, DAILY (1 EVERY 1 DAYS)
  8. METFORMIN [Concomitant]
     Active Substance: METFORMIN HYDROCHLORIDE
     Dosage: 1000 MG, 2X/DAY (1 EVERY 12 HOURS)

REACTIONS (7)
  - Embolism [Recovered/Resolved]
  - Immune thrombocytopenia [Recovered/Resolved]
  - Inappropriate schedule of product administration [Recovered/Resolved]
  - Infection [Recovered/Resolved]
  - Post procedural complication [Recovered/Resolved]
  - Weight decreased [Recovered/Resolved]
  - Wound secretion [Recovered/Resolved]
